FAERS Safety Report 8420950-9 (Version None)
Quarter: 2012Q2

REPORT INFORMATION
  Report Type: 
  Country: None (occurrence: None)
  Receive Date: 20120608
  Receipt Date: 20120604
  Transmission Date: 20120825
  Serious: Yes (Other)
  Sender: FDA-Public Use
  Company Number: US-PFIZER INC-2012134093

PATIENT
  Sex: Female

DRUGS (3)
  1. NEURONTIN [Suspect]
     Indication: CEREBRAL DISORDER
     Dosage: 300 MG, 4X/DAY
     Route: 048
  2. LYRICA [Suspect]
     Indication: CEREBRAL DISORDER
     Route: 048
  3. NEURONTIN [Suspect]
     Dosage: UNK
     Route: 048

REACTIONS (7)
  - INSOMNIA [None]
  - INTERVERTEBRAL DISC PROTRUSION [None]
  - HYPERSENSITIVITY [None]
  - FATIGUE [None]
  - BACK DISORDER [None]
  - DEPRESSION [None]
  - ARTHROPATHY [None]
